FAERS Safety Report 5773820-9 (Version None)
Quarter: 2008Q2

REPORT INFORMATION
  Report Type: 
  Country: None (occurrence: None)
  Receive Date: 20080616
  Receipt Date: 20080603
  Transmission Date: 20081010
  Serious: Yes (Hospitalization)
  Sender: FDA-Public Use
  Company Number: JP-VALEANT-2008VX001238

PATIENT
  Age: 65 Year
  Sex: Male

DRUGS (2)
  1. PERMAX [Suspect]
     Indication: PARKINSON'S DISEASE
     Route: 048
     Dates: start: 20080401
  2. PERMAX [Suspect]
     Route: 048
     Dates: start: 20080401

REACTIONS (1)
  - GASTROINTESTINAL HAEMORRHAGE [None]
